FAERS Safety Report 7788594-X (Version None)
Quarter: 2011Q3

REPORT INFORMATION
  Report Type: 
  Country: None (occurrence: None)
  Receive Date: 20110928
  Receipt Date: 20110915
  Transmission Date: 20111222
  Serious: Yes (Life-Threatening, Hospitalization)
  Sender: FDA-Public Use
  Company Number: GB-1188079

PATIENT
  Age: 78 Year
  Sex: Female

DRUGS (10)
  1. CODEINE PHOSPHATE [Concomitant]
  2. BECLOMETHASONE AQUEOUS [Concomitant]
  3. ACETAMINOPHEN [Concomitant]
  4. ALBUTEROL [Concomitant]
  5. FOLIC ACID [Concomitant]
  6. FLUORESCITE [Suspect]
     Indication: ANGIOGRAM
     Dosage: (INTRAVENOUS BOLUS)
     Route: 040
     Dates: start: 20110812, end: 20110812
  7. FUROSEMIDE [Concomitant]
  8. SALMETEROL [Concomitant]
  9. OMEPRAZOLE [Concomitant]
  10. PROPRANOLOL [Concomitant]

REACTIONS (3)
  - FALL [None]
  - SYNCOPE [None]
  - CEREBROVASCULAR ACCIDENT [None]
